FAERS Safety Report 18225158 (Version 1)
Quarter: 2020Q3

REPORT INFORMATION
  Report Type: Spontaneous
  Country: IN (occurrence: IN)
  Receive Date: 20200903
  Receipt Date: 20200903
  Transmission Date: 20201103
  Serious: Yes (Other)
  Sender: FDA-Public Use
  Company Number: IN-LUPIN PHARMACEUTICALS INC.-2020-05208

PATIENT
  Age: 49 Year
  Sex: Female

DRUGS (9)
  1. NATAMYCIN [Concomitant]
     Active Substance: NATAMYCIN
     Indication: KERATITIS FUNGAL
     Dosage: UNK
     Route: 061
  2. LINEZOLID. [Concomitant]
     Active Substance: LINEZOLID
     Indication: KERATITIS FUNGAL
     Dosage: UNK (HOURLY ADMINISTRATION)
     Route: 061
  3. VORICONAZOLE. [Suspect]
     Active Substance: VORICONAZOLE
     Dosage: UNK (1 PERCENT, HOURLY)
     Route: 061
  4. CLOTRIMAZOLE. [Concomitant]
     Active Substance: CLOTRIMAZOLE
     Indication: KERATITIS FUNGAL
     Dosage: UNK (HOURLY ADMINISTRATION)
     Route: 061
  5. HOMATROPINE [Concomitant]
     Active Substance: HOMATROPINE HYDROBROMIDE
     Indication: KERATITIS FUNGAL
     Route: 061
  6. VORICONAZOLE. [Suspect]
     Active Substance: VORICONAZOLE
     Indication: KERATITIS FUNGAL
     Dosage: UNK (1 PERCENT, HOURLY)
     Route: 061
  7. VORICONAZOLE. [Suspect]
     Active Substance: VORICONAZOLE
     Dosage: 200 MILLIGRAM, BID
     Route: 048
  8. VORICONAZOLE. [Suspect]
     Active Substance: VORICONAZOLE
     Dosage: UNK (INJECTION)
  9. VORICONAZOLE. [Suspect]
     Active Substance: VORICONAZOLE
     Dosage: 200 MILLIGRAM, BID
     Route: 048

REACTIONS (1)
  - Ocular surface squamous neoplasia [Recovered/Resolved]
